FAERS Safety Report 6248863-1 (Version None)
Quarter: 2009Q2

REPORT INFORMATION
  Report Type: 
  Country: None (occurrence: None)
  Receive Date: 20090629
  Receipt Date: 20090505
  Transmission Date: 20091009
  Serious: No
  Sender: FDA-Public Use
  Company Number: US-TYCO HEALTHCARE/MALLINCKRODT-T200901014

PATIENT
  Sex: Female
  Weight: 82.086 kg

DRUGS (6)
  1. TECHNETIUM TC 99M SESTAMIBI [Suspect]
     Indication: CARDIAC IMAGING PROCEDURE
     Dosage: UNK, SINGLE
     Dates: start: 20090430, end: 20090430
  2. TECHNETIUM TC 99M GENERATOR [Concomitant]
     Indication: CARDIAC IMAGING PROCEDURE
     Dosage: UNK, SINGLE
     Dates: start: 20090430, end: 20090430
  3. BENADRYL [Concomitant]
     Indication: DRUG USE FOR UNKNOWN INDICATION
     Dosage: 25 MG, QD
     Route: 048
  4. ASPIRIN [Concomitant]
     Indication: CARDIAC DISORDER
     Dosage: 81 MG, QD
     Route: 048
  5. ATENOLOL [Concomitant]
     Indication: HYPERTENSION
     Dosage: 100 MG, QD
     Route: 048
  6. BENICAR HCT [Concomitant]
     Indication: HYPERTENSION
     Dosage: UNK
     Route: 048

REACTIONS (1)
  - DRUG INEFFECTIVE [None]
